FAERS Safety Report 15799205 (Version 1)
Quarter: 2019Q1

REPORT INFORMATION
  Report Type: Report from Study
  Country: US (occurrence: US)
  Receive Date: 20190108
  Receipt Date: 20190108
  Transmission Date: 20190417
  Serious: Yes (Other)
  Sender: FDA-Public Use
  Company Number: US-JAZZ-2017-US-006949

PATIENT
  Sex: Female

DRUGS (35)
  1. XYREM [Suspect]
     Active Substance: SODIUM OXYBATE
     Dosage: DOSE ADJUSTMENT
     Route: 048
     Dates: start: 201104, end: 201105
  2. XYREM [Suspect]
     Active Substance: SODIUM OXYBATE
     Dosage: 4.5 G, BID
     Route: 048
     Dates: start: 201105
  3. LIDODERM [Concomitant]
     Active Substance: LIDOCAINE
  4. TRAZODONE [Concomitant]
     Active Substance: TRAZODONE HYDROCHLORIDE
  5. TYLENOL EXTRA STRENGTH [Concomitant]
     Active Substance: ACETAMINOPHEN
  6. TENS [Concomitant]
  7. GLICLAZIDE [Concomitant]
     Active Substance: GLICLAZIDE
  8. BACLOFEN. [Concomitant]
     Active Substance: BACLOFEN
  9. BIOTIN [Concomitant]
     Active Substance: BIOTIN
  10. BYSTOLIC [Concomitant]
     Active Substance: NEBIVOLOL HYDROCHLORIDE
  11. CLONAZEPAM. [Concomitant]
     Active Substance: CLONAZEPAM
  12. DHEA [Concomitant]
     Active Substance: PRASTERONE
  13. FLAXSEED [Concomitant]
     Active Substance: FLAX SEED
  14. NALTREXONE [Concomitant]
     Active Substance: NALTREXONE
  15. CLOTRIMAZOLE AND BETAMETHASONE [Concomitant]
     Active Substance: BETAMETHASONE\CLOTRIMAZOLE
  16. TIROSINT [Concomitant]
     Active Substance: LEVOTHYROXINE SODIUM
  17. ULTRAZYME [Concomitant]
  18. ZINC. [Concomitant]
     Active Substance: ZINC
  19. LOSARTAN. [Suspect]
     Active Substance: LOSARTAN
     Indication: PRODUCT USED FOR UNKNOWN INDICATION
  20. ADDERALL [Concomitant]
     Active Substance: AMPHETAMINE ASPARTATE\AMPHETAMINE SULFATE\DEXTROAMPHETAMINE SACCHARATE\DEXTROAMPHETAMINE SULFATE
  21. ADRENAL [Concomitant]
     Active Substance: EPINEPHRINE
  22. ARMOUR THYROID [Concomitant]
     Active Substance: THYROID, PORCINE
  23. ESTRADIOL VALERATE W/PROGESTERONE [Concomitant]
  24. LIDOCAINE. [Concomitant]
     Active Substance: LIDOCAINE
  25. RANITIDINE HCL [Concomitant]
     Active Substance: RANITIDINE HYDROCHLORIDE
  26. WELLBUTRIN [Concomitant]
     Active Substance: BUPROPION HYDROCHLORIDE
  27. ASCORBIC ACID. [Concomitant]
     Active Substance: ASCORBIC ACID
  28. XYREM [Suspect]
     Active Substance: SODIUM OXYBATE
     Indication: CHRONIC FATIGUE SYNDROME
     Dosage: 2.25 G, BID
     Route: 048
     Dates: start: 201103, end: 201104
  29. BUTALBITAL APAP CAFFEINE [Concomitant]
  30. CALCIUM ANTACID [Concomitant]
     Active Substance: CALCIUM CARBONATE
  31. CYMBALTA [Concomitant]
     Active Substance: DULOXETINE HYDROCHLORIDE
  32. FIBER [Concomitant]
     Active Substance: PSYLLIUM HUSK
  33. COENZYME Q10 [Concomitant]
     Active Substance: UBIDECARENONE
  34. DOXEPIN [Concomitant]
     Active Substance: DOXEPIN
  35. SERRAPEPTASE [Concomitant]
     Active Substance: SERRAPEPTASE

REACTIONS (10)
  - Nausea [Recovered/Resolved]
  - Ear discomfort [Unknown]
  - Renal function test abnormal [Unknown]
  - Hypersensitivity [Not Recovered/Not Resolved]
  - Fibromyalgia [Recovering/Resolving]
  - Liver function test increased [Unknown]
  - Pre-existing condition improved [Unknown]
  - Depression [Not Recovered/Not Resolved]
  - Therapeutic response unexpected [Unknown]
  - Nasal discomfort [Unknown]
